FAERS Safety Report 14647351 (Version 11)
Quarter: 2019Q2

REPORT INFORMATION
  Report Type: Spontaneous
  Country: US (occurrence: US)
  Receive Date: 20180316
  Receipt Date: 20190613
  Transmission Date: 20190711
  Serious: Yes (Hospitalization, Other)
  Sender: FDA-Public Use
  Company Number: US-PFIZER INC-2018088812

PATIENT
  Age: 77 Year
  Sex: Female
  Weight: 79 kg

DRUGS (9)
  1. LYRICA [Suspect]
     Active Substance: PREGABALIN
     Indication: HERPES ZOSTER
     Dosage: 2 DF, ONCE DAILY
  2. LYRICA [Suspect]
     Active Substance: PREGABALIN
     Indication: NERVE INJURY
     Dosage: 3 DF, DAILY
  3. LYRICA [Suspect]
     Active Substance: PREGABALIN
     Indication: FIBROMYALGIA
     Dosage: 75 MG, ONCE A DAY (ONCE IN THE MORNING)
     Route: 048
     Dates: start: 2018, end: 20180304
  4. LYRICA [Suspect]
     Active Substance: PREGABALIN
     Dosage: 200 MG, DAILY
  5. LYRICA [Suspect]
     Active Substance: PREGABALIN
     Dosage: 100 MG, TWICE DAILY (1 CAP, EVERY 12 HOURS)
     Route: 048
  6. LYRICA [Suspect]
     Active Substance: PREGABALIN
     Indication: POST HERPETIC NEURALGIA
     Dosage: 4 DF, DAILY (UPPED TO FOUR A DAY)
  7. LYRICA [Suspect]
     Active Substance: PREGABALIN
     Indication: HEADACHE
     Dosage: 75 MG, TWICE DAILY (EVERY 12 HOURS)
     Route: 048
  8. ZYRTEC [Concomitant]
     Active Substance: CETIRIZINE HYDROCHLORIDE
     Dosage: UNK
  9. LYRICA [Suspect]
     Active Substance: PREGABALIN
     Indication: NEUROPATHY PERIPHERAL
     Dosage: 75 MG, TWICE A DAY (ONE CAPSULE IN THE MORNING AND ONE CAPSULE 12 HOURS LATER IN THE EVENING)
     Route: 048
     Dates: start: 20180305

REACTIONS (26)
  - Drug ineffective [Recovering/Resolving]
  - Confusional state [Unknown]
  - Cystitis [Unknown]
  - Labyrinthitis [Recovered/Resolved]
  - Urinary tract infection [Unknown]
  - Malaise [Unknown]
  - Cerebrovascular accident [Unknown]
  - Disease recurrence [Unknown]
  - Vomiting [Recovered/Resolved]
  - Headache [Recovered/Resolved]
  - Off label use [Unknown]
  - Dementia Alzheimer^s type [Unknown]
  - Dehydration [Unknown]
  - Sinusitis [Unknown]
  - Herpes zoster [Unknown]
  - Hypotension [Unknown]
  - Asthenia [Not Recovered/Not Resolved]
  - Hypoacusis [Unknown]
  - Otitis media [Unknown]
  - Diarrhoea [Unknown]
  - Gait disturbance [Unknown]
  - Product use issue [Unknown]
  - Ear pain [Recovered/Resolved]
  - Memory impairment [Unknown]
  - Nausea [Not Recovered/Not Resolved]
  - Intentional product misuse [Unknown]

NARRATIVE: CASE EVENT DATE: 2018
